FAERS Safety Report 8008760-8 (Version None)
Quarter: 2011Q4

REPORT INFORMATION
  Report Type: 
  Country: None (occurrence: None)
  Receive Date: 20111227
  Receipt Date: 20111220
  Transmission Date: 20120403
  Serious: Yes (Life-Threatening)
  Sender: FDA-Public Use
  Company Number: IT-ASTRAZENECA-2011SE75122

PATIENT
  Sex: Male

DRUGS (10)
  1. CORTISONIC DRUG (NOT SPECIFIED) [Concomitant]
     Indication: ARTHRITIS
  2. CARBAMAZEPINE [Concomitant]
     Route: 048
  3. CEFIXIME [Concomitant]
     Indication: PYREXIA
  4. TOPIRAMATE [Concomitant]
     Route: 048
  5. BISOPROLOL FUMARATE [Concomitant]
     Route: 048
  6. VALSARTAN [Concomitant]
     Route: 048
  7. OMEPRAZOLE [Suspect]
     Indication: ABDOMINAL PAIN UPPER
     Dosage: TABLETS
     Route: 048
     Dates: start: 20110802, end: 20110816
  8. CLOPIDOGREL [Concomitant]
     Route: 048
  9. FUROSEMIDE [Concomitant]
     Route: 048
  10. ALLOPURINOL [Concomitant]
     Indication: HYPERURICAEMIA

REACTIONS (1)
  - ISCHAEMIC STROKE [None]
